FAERS Safety Report 10191198 (Version 2)
Quarter: 2014Q2

REPORT INFORMATION
  Report Type: Spontaneous
  Country: GB (occurrence: GB)
  Receive Date: 20140523
  Receipt Date: 20140605
  Transmission Date: 20141212
  Serious: Yes (Disabling, Other)
  Sender: FDA-Public Use
  Company Number: GB-ACCORD-023819

PATIENT
  Sex: Male
  Weight: 35.9 kg

DRUGS (9)
  1. CYCLOPHOSPHAMIDE/CYCLOPHOSPHAMIDE MONOHYDRATE [Concomitant]
     Route: 042
     Dates: start: 20140306, end: 20140308
  2. FOLINIC ACID [Concomitant]
     Dosage: UNTIL METHOTREXATE LEVEL ANDGT;1
     Route: 042
     Dates: start: 20140306
  3. SAMSCA [Suspect]
     Indication: INAPPROPRIATE ANTIDIURETIC HORMONE SECRETION
     Dosage: 5-10MG ONCE TO TWICE DAILY TITRATED TO URINE OUTPUT AND FLUID BALANCE NO MORE THAN 15MG DAILY
     Route: 048
     Dates: start: 20140227, end: 20140305
  4. DOXORUBICIN [Concomitant]
     Route: 042
     Dates: start: 20140306
  5. METHOTREXATE [Interacting]
     Indication: NON-HODGKIN^S LYMPHOMA
     Route: 042
     Dates: start: 20140305, end: 20140305
  6. CYTARABINE/CYTARABINE HYDROCHLORIDE/CYTARABINE OCFOSFATE [Concomitant]
  7. PREDNISOLONE [Concomitant]
     Route: 048
     Dates: start: 20140305, end: 20140309
  8. VINCRISTINE [Concomitant]
     Route: 042
     Dates: start: 20140305
  9. HYDROCORTISONE [Concomitant]

REACTIONS (7)
  - Dermatitis [Recovering/Resolving]
  - Skin discolouration [Recovering/Resolving]
  - Drug interaction [Unknown]
  - Oedema [Recovering/Resolving]
  - Wrong technique in drug usage process [Unknown]
  - Off label use [Unknown]
  - Dactylitis [Recovering/Resolving]
